FAERS Safety Report 9616994 (Version 2)
Quarter: 2013Q4

REPORT INFORMATION
  Report Type: Report from Study
  Country: US (occurrence: US)
  Receive Date: 20131011
  Receipt Date: 20131129
  Transmission Date: 20140711
  Serious: Yes (Death, Other)
  Sender: FDA-Public Use
  Company Number: US-ASTRAZENECA-2013SE75118

PATIENT
  Age: 76 Year
  Sex: Female
  Weight: 72.6 kg

DRUGS (13)
  1. NEXIUM [Suspect]
     Indication: DYSPEPSIA
     Route: 048
     Dates: end: 20130806
  2. CRESTOR [Suspect]
     Indication: BLOOD CHOLESTEROL ABNORMAL
     Route: 048
     Dates: end: 20130806
  3. LISINOPRIL [Suspect]
     Indication: BLOOD PRESSURE
     Route: 048
     Dates: end: 20130806
  4. KLOR-CON [Concomitant]
     Indication: BLOOD POTASSIUM
     Route: 048
     Dates: end: 20130806
  5. PLAVIX [Concomitant]
     Indication: BLOOD PRESSURE ABNORMAL
     Route: 048
     Dates: end: 20130806
  6. LASIX [Concomitant]
     Indication: FLUID IMBALANCE
     Route: 048
     Dates: end: 20130806
  7. NATEGLINIDE [Concomitant]
     Indication: DIABETES MELLITUS
     Route: 048
     Dates: end: 20130806
  8. COREG CR [Concomitant]
     Indication: BLOOD PRESSURE ABNORMAL
     Route: 048
     Dates: end: 20130806
  9. MIRTAZAPINE [Concomitant]
     Indication: DEPRESSION
     Route: 048
     Dates: end: 20130806
  10. SERTRALINE [Concomitant]
     Indication: ANXIETY
     Route: 048
     Dates: end: 20130806
  11. OPANA ER [Concomitant]
     Indication: PAIN
     Route: 048
     Dates: end: 20130806
  12. COMBIVENT [Concomitant]
     Indication: DYSPNOEA
     Route: 055
     Dates: end: 20130806
  13. ADVAIR [Concomitant]
     Indication: DYSPNOEA
     Route: 055
     Dates: end: 20130806

REACTIONS (5)
  - Death [Fatal]
  - Cardiac failure congestive [Unknown]
  - Pneumonia [Unknown]
  - Raynaud^s phenomenon [Unknown]
  - Diverticulitis [Unknown]
